FAERS Safety Report 8223193-7 (Version None)
Quarter: 2012Q1

REPORT INFORMATION
  Report Type: 
  Country: None (occurrence: None)
  Receive Date: 20120321
  Receipt Date: 20120308
  Transmission Date: 20120608
  Serious: Yes (Hospitalization)
  Sender: FDA-Public Use
  Company Number: DK-ROCHE-1036549

PATIENT
  Sex: Female
  Weight: 64 kg

DRUGS (16)
  1. CYCLOPHOSPHAMIDE [Suspect]
     Route: 042
     Dates: start: 20120213
  2. PREDNISONE TAB [Suspect]
     Indication: B-CELL LYMPHOMA
     Route: 048
     Dates: start: 20120109
  3. SIMVASTATIN [Concomitant]
     Indication: BLOOD CHOLESTEROL
     Route: 048
     Dates: start: 20100917
  4. PREDNISONE TAB [Suspect]
     Route: 048
     Dates: start: 20120213
  5. TENORETIC 100 [Concomitant]
     Indication: HYPERTENSION
     Dosage: 50+ 0.5
     Route: 048
     Dates: start: 20111218
  6. MIRTAZAPINE [Concomitant]
     Indication: DEPRESSION
     Route: 048
     Dates: start: 20111219
  7. FILGRASTIM [Suspect]
     Route: 058
     Dates: start: 20120214
  8. DOXORUBICIN HCL [Suspect]
     Route: 042
     Dates: start: 20120213
  9. VINCRISTINE [Suspect]
     Indication: B-CELL LYMPHOMA
     Route: 042
     Dates: start: 20120109
  10. MABTHERA [Suspect]
     Indication: B-CELL LYMPHOMA
     Route: 042
     Dates: start: 20120109
  11. DOXORUBICIN HCL [Suspect]
     Indication: B-CELL LYMPHOMA
     Route: 042
     Dates: start: 20120109
  12. VENLAFAXINE [Concomitant]
     Indication: DEPRESSION
     Route: 048
     Dates: start: 20120105
  13. CYCLOPHOSPHAMIDE [Suspect]
     Indication: B-CELL LYMPHOMA
     Route: 042
     Dates: start: 20120109
  14. FILGRASTIM [Suspect]
     Indication: B-CELL LYMPHOMA
     Route: 058
     Dates: start: 20120110
  15. MABTHERA [Suspect]
     Route: 042
     Dates: start: 20120218
  16. PANTOPRAZOLE [Concomitant]
     Indication: DYSPEPSIA
     Route: 048
     Dates: start: 20120105

REACTIONS (3)
  - ORAL CANDIDIASIS [None]
  - WEIGHT DECREASED [None]
  - DEHYDRATION [None]
